FAERS Safety Report 21841955 (Version 1)
Quarter: 2023Q1

REPORT INFORMATION
  Report Type: Spontaneous
  Country: DE (occurrence: DE)
  Receive Date: 20230110
  Receipt Date: 20230110
  Transmission Date: 20230417
  Serious: Yes (Congenital Anomaly, Other)
  Sender: FDA-Public Use
  Company Number: DE-002147023-NVSC2022DE303005

PATIENT
  Sex: Female

DRUGS (4)
  1. RITONAVIR [Suspect]
     Active Substance: RITONAVIR
     Indication: Maternal exposure timing unspecified
     Route: 064
  2. RALTEGRAVIR [Suspect]
     Active Substance: RALTEGRAVIR
     Indication: Maternal exposure timing unspecified
     Route: 064
  3. DARUNAVIR [Suspect]
     Active Substance: DARUNAVIR
     Indication: Maternal exposure timing unspecified
     Route: 064
  4. DOLUTEGRAVIR [Suspect]
     Active Substance: DOLUTEGRAVIR
     Indication: Maternal exposure timing unspecified
     Route: 064

REACTIONS (4)
  - Atrial septal defect [Unknown]
  - Foetal exposure during pregnancy [Unknown]
  - Aortic stenosis [Unknown]
  - Live birth [Unknown]
